FAERS Safety Report 5044627-5 (Version None)
Quarter: 2006Q2

REPORT INFORMATION
  Report Type: 
  Country: None (occurrence: None)
  Receive Date: 20060629
  Receipt Date: 20060619
  Transmission Date: 20061013
  Serious: Yes (Other)
  Sender: FDA-Public Use
  Company Number: L06-ITA-02573-10

PATIENT
  Age: 13 Year
  Sex: Male

DRUGS (4)
  1. CARBAMAZEPINE [Suspect]
     Indication: GRAND MAL CONVULSION
  2. CARBAMAZEPINE [Suspect]
     Indication: INFANTILE SPASMS
  3. CARBAMAZEPINE [Suspect]
     Indication: PETIT MAL EPILEPSY
  4. PHENOBARBITAL [Concomitant]
     Indication: INFANTILE SPASMS

REACTIONS (4)
  - CONDITION AGGRAVATED [None]
  - HYPOTONIA [None]
  - PETIT MAL EPILEPSY [None]
  - SALIVARY HYPERSECRETION [None]
